FAERS Safety Report 4963642-0 (Version None)
Quarter: 2006Q2

REPORT INFORMATION
  Report Type: 
  Country: None (occurrence: None)
  Receive Date: 20060405
  Receipt Date: 20060307
  Transmission Date: 20061013
  Serious: Yes (Life-Threatening, Hospitalization)
  Sender: FDA-Public Use
  Company Number: AU-BOEHRINGER INGELHEIM PHARMACEUTICALS, INC.-2006-BP-02617AU

PATIENT
  Sex: Female

DRUGS (3)
  1. MOBIC [Suspect]
     Indication: BACK PAIN
     Route: 048
  2. MOBIC [Suspect]
     Indication: OSTEOARTHRITIS
  3. TRAMAL [Concomitant]

REACTIONS (1)
  - ACUTE PULMONARY OEDEMA [None]
